FAERS Safety Report 25246529 (Version 2)
Quarter: 2025Q2

REPORT INFORMATION
  Report Type: Spontaneous
  Country: US (occurrence: US)
  Receive Date: 20250428
  Receipt Date: 20250530
  Transmission Date: 20250716
  Serious: No
  Sender: ADMA BIOLOGICS
  Company Number: US-ADMA BIOLOGICS INC.-US-2025ADM000158

PATIENT
  Age: 78 Year
  Sex: Female
  Weight: 87.075 kg

DRUGS (2)
  1. BIVIGAM [Suspect]
     Active Substance: HUMAN IMMUNOGLOBULIN G
     Indication: Immunodeficiency
     Route: 042
     Dates: start: 20220418, end: 20250414
  2. BIVIGAM [Suspect]
     Active Substance: HUMAN IMMUNOGLOBULIN G
     Indication: Chronic lymphocytic leukaemia

REACTIONS (2)
  - Urticaria [Recovered/Resolved]
  - Off label use [Unknown]

NARRATIVE: CASE EVENT DATE: 20250414
